FAERS Safety Report 6032598-4 (Version None)
Quarter: 2009Q1

REPORT INFORMATION
  Report Type: 
  Country: None (occurrence: None)
  Receive Date: 20090107
  Receipt Date: 20081228
  Transmission Date: 20090719
  Serious: Yes (Hospitalization)
  Sender: FDA-Public Use
  Company Number: 1-17180637

PATIENT
  Age: 40 Year
  Sex: Female

DRUGS (1)
  1. PREDNISOLONE [Suspect]
     Dosage: 5 MG ONCE DAILY, ORAL
     Route: 048

REACTIONS (8)
  - ABDOMINAL PAIN UPPER [None]
  - DIABETES MELLITUS [None]
  - HYPERLIPIDAEMIA [None]
  - HYPERTRIGLYCERIDAEMIA [None]
  - NAUSEA [None]
  - PANCREATITIS [None]
  - THIRST [None]
  - VOMITING [None]
